FAERS Safety Report 10018348 (Version 1)
Quarter: 2014Q1

REPORT INFORMATION
  Report Type: Spontaneous
  Country: US (occurrence: None)
  Receive Date: 20140312
  Receipt Date: 20140312
  Transmission Date: 20141002
  Serious: Yes (Death)
  Sender: FDA-Public Use
  Company Number: UTC-045529

PATIENT
  Age: 79 Year
  Sex: Female
  Weight: 71.4 kg

DRUGS (2)
  1. TYVASO [Suspect]
     Indication: PULMONARY ARTERIAL HYPERTENSION
     Dosage: 18 TO 54 MCG (4 IN 1
     Dates: start: 20140127
  2. ADCIRCA [Concomitant]

REACTIONS (1)
  - Death [None]
